FAERS Safety Report 4444340-9 (Version None)
Quarter: 2004Q3

REPORT INFORMATION
  Report Type: 
  Country: None (occurrence: None)
  Receive Date: 20040730
  Receipt Date: 20030501
  Transmission Date: 20050211
  Serious: No
  Sender: FDA-Public Use
  Company Number: 03H-163-0218246-00

PATIENT
  Age: 16 Year

DRUGS (1)
  1. ULTANE (SEVOFLURANE) LIQUID FOR INHALATION USP 250 ML (ULTANE LIQUID F [Suspect]
     Indication: ANAESTHESIA
     Dosage: INHALATION
     Route: 055
     Dates: start: 20020101

REACTIONS (1)
  - CONVULSION [None]
